FAERS Safety Report 18474575 (Version 1)
Quarter: 2020Q4

REPORT INFORMATION
  Report Type: Spontaneous
  Country: US (occurrence: US)
  Receive Date: 20201106
  Receipt Date: 20201106
  Transmission Date: 20210114
  Serious: No
  Sender: FDA-Public Use
  Company Number: US-TAKEDA-2020TUS047744

PATIENT
  Sex: Female
  Weight: 48 kg

DRUGS (1)
  1. ALUNBRIG [Suspect]
     Active Substance: BRIGATINIB
     Indication: LUNG NEOPLASM MALIGNANT
     Dosage: 180 MILLIGRAM, QD
     Route: 065

REACTIONS (4)
  - Skin exfoliation [Unknown]
  - Eyelids pruritus [Unknown]
  - Rash [Unknown]
  - Swelling of eyelid [Unknown]
